FAERS Safety Report 8485603-X (Version None)
Quarter: 2012Q3

REPORT INFORMATION
  Report Type: 
  Country: None (occurrence: None)
  Receive Date: 20120703
  Receipt Date: 20120627
  Transmission Date: 20120928
  Serious: Yes (Hospitalization)
  Sender: FDA-Public Use
  Company Number: US-TEVA-338002USA

PATIENT
  Sex: Male

DRUGS (8)
  1. COPAXONE [Suspect]
     Indication: MULTIPLE SCLEROSIS
     Route: 058
     Dates: start: 20111028
  2. ASPIRIN [Concomitant]
  3. BACLOFEN [Concomitant]
  4. OMEPRAZOLE [Concomitant]
  5. FLUOXETINE [Concomitant]
  6. DICLOFENAC SODIUM [Concomitant]
  7. FENTANYL [Concomitant]
     Route: 062
  8. DOCUSATE [Concomitant]

REACTIONS (2)
  - PROSTATITIS [None]
  - BACTERAEMIA [None]
